FAERS Safety Report 7635062-1 (Version None)
Quarter: 2011Q3

REPORT INFORMATION
  Report Type: 
  Country: None (occurrence: None)
  Receive Date: 20110718
  Receipt Date: 20110707
  Transmission Date: 20111222
  Serious: Yes (Death)
  Sender: FDA-Public Use
  Company Number: GB-ACCORD-009851

PATIENT
  Age: 28 Year

DRUGS (7)
  1. METHADONE HCL [Suspect]
  2. TEMAZEPAM [Suspect]
  3. VENLAFAXINE [Suspect]
  4. CLONAZEPAM [Suspect]
  5. CODEINE SULFATE [Suspect]
  6. ACETAMINOPHEN [Suspect]
  7. DIAZEPAM [Suspect]

REACTIONS (7)
  - TOXICITY TO VARIOUS AGENTS [None]
  - BRONCHOPNEUMONIA [None]
  - ACCIDENTAL POISONING [None]
  - PULMONARY CONGESTION [None]
  - ACCIDENTAL OVERDOSE [None]
  - SNORING [None]
  - RESPIRATORY DEPRESSION [None]
